FAERS Safety Report 5304224-0 (Version None)
Quarter: 2007Q2

REPORT INFORMATION
  Report Type: 
  Country: None (occurrence: None)
  Receive Date: 20070423
  Receipt Date: 20070416
  Transmission Date: 20071010
  Serious: Yes (Other)
  Sender: FDA-Public Use
  Company Number: PHEH2007US05528

PATIENT
  Sex: Male

DRUGS (2)
  1. ZELNORM [Suspect]
     Dosage: UNK, UNK
     Dates: end: 20070411
  2. FLOMAX [Concomitant]
     Dosage: UNK, UNK

REACTIONS (1)
  - CONVULSION [None]
